FAERS Safety Report 12491665 (Version 1)
Quarter: 2016Q2

REPORT INFORMATION
  Report Type: Spontaneous
  Country: US (occurrence: None)
  Receive Date: 20160622
  Receipt Date: 20160622
  Transmission Date: 20160815
  Serious: Yes (Life-Threatening, Other)
  Sender: FDA-Public Use
  Company Number: None

PATIENT
  Age: 49 Year
  Sex: Female
  Weight: 99.79 kg

DRUGS (7)
  1. ZYRTEC [Concomitant]
     Active Substance: CETIRIZINE HYDROCHLORIDE
  2. FLUOXETINE [Concomitant]
     Active Substance: FLUOXETINE HYDROCHLORIDE
  3. LINZESS [Concomitant]
     Active Substance: LINACLOTIDE
  4. SYNTHROID [Concomitant]
     Active Substance: LEVOTHYROXINE SODIUM
  5. HUMIRA [Suspect]
     Active Substance: ADALIMUMAB
     Indication: ANKYLOSING SPONDYLITIS
     Dosage: .8 INJECTION (S) 2 X MONTHLY APPLIED TO A SURFACE, USUALLY THE SKIN
     Dates: start: 20160525, end: 20160526
  6. ESTRADIOL. [Concomitant]
     Active Substance: ESTRADIOL
  7. VITAMIN D3 [Concomitant]
     Active Substance: CHOLECALCIFEROL

REACTIONS (10)
  - Urticaria [None]
  - Anaphylactic reaction [None]
  - Abdominal pain [None]
  - Injection site pain [None]
  - Pruritus [None]
  - Hypersensitivity [None]
  - Injection site erythema [None]
  - Dyspnoea [None]
  - Pharyngeal oedema [None]
  - Arthritis [None]

NARRATIVE: CASE EVENT DATE: 20160526
